FAERS Safety Report 18045100 (Version 1)
Quarter: 2020Q3

REPORT INFORMATION
  Report Type: Spontaneous
  Country: US (occurrence: US)
  Receive Date: 20200720
  Receipt Date: 20200720
  Transmission Date: 20201103
  Serious: Yes (Hospitalization, Other)
  Sender: FDA-Public Use
  Company Number: US-SA-2020SA186051

PATIENT

DRUGS (6)
  1. CLOPIDOGREL BISULFATE. [Suspect]
     Active Substance: CLOPIDOGREL BISULFATE
     Indication: PRODUCT USED FOR UNKNOWN INDICATION
     Dosage: 75 MG
     Route: 065
  2. ELIQUIS [Suspect]
     Active Substance: APIXABAN
     Indication: FACTOR V DEFICIENCY
     Dosage: 5 MG, BID
     Route: 048
  3. ELIQUIS [Suspect]
     Active Substance: APIXABAN
     Dosage: UNK (INCREASED)
     Route: 048
  4. INSULIN DETEMIR [Concomitant]
     Active Substance: INSULIN DETEMIR
     Dosage: UNK
     Route: 065
  5. CLOPIDOGREL BISULFATE. [Suspect]
     Active Substance: CLOPIDOGREL BISULFATE
     Dosage: UNK (DECREASED)
     Route: 065
  6. AMYLASE/LIPASE/PROTEASE [Concomitant]
     Active Substance: AMYLASE\LIPASE\PROTEASE
     Dosage: 24000 UNK, TID
     Route: 065

REACTIONS (5)
  - Multiple fractures [Unknown]
  - Pain [Unknown]
  - Renal disorder [Unknown]
  - Pancreatic disorder [Unknown]
  - Diabetes mellitus [Unknown]
